FAERS Safety Report 8309475-9 (Version None)
Quarter: 2012Q2

REPORT INFORMATION
  Report Type: 
  Country: None (occurrence: None)
  Receive Date: 20120425
  Receipt Date: 20120420
  Transmission Date: 20120825
  Serious: No
  Sender: FDA-Public Use
  Company Number: US-PFIZER INC-2012098557

PATIENT
  Sex: Female
  Weight: 92.517 kg

DRUGS (16)
  1. TOPROL-XL [Suspect]
     Dosage: UNK
  2. POTASSIUM [Concomitant]
     Dosage: UNK
  3. XANAX [Suspect]
     Dosage: UNK
     Route: 048
  4. CHANTIX [Suspect]
     Dosage: UNK
  5. TOPROL-XL [Suspect]
     Indication: HYPERTENSION
     Dosage: 50 MG, 2X/DAY
  6. ASPIRIN [Concomitant]
     Dosage: UNK
  7. WELLBUTRIN [Suspect]
     Indication: DEPRESSION
  8. LYRICA [Suspect]
     Indication: NERVE INJURY
     Dosage: UNK
     Route: 048
  9. NEURONTIN [Suspect]
     Dosage: UNK
  10. XANAX [Suspect]
     Indication: DEPRESSION
     Dosage: 0.5 MG, 3X/DAY
     Route: 048
  11. PLAVIX [Suspect]
     Indication: BLOOD DISORDER
     Dosage: UNK
  12. LYRICA [Suspect]
     Indication: FIBROMYALGIA
     Dosage: 225 MG, 2X/DAY
     Route: 048
     Dates: start: 20120201
  13. VICODIN [Suspect]
     Dosage: UNK
  14. NORVASC [Suspect]
     Indication: HYPERTENSION
     Dosage: 10 MG, 1X/DAY
  15. LIPITOR [Suspect]
     Dosage: UNK
  16. WELLBUTRIN [Suspect]
     Indication: ANXIETY
     Dosage: UNK

REACTIONS (4)
  - FEAR OF FALLING [None]
  - EUPHORIC MOOD [None]
  - DIZZINESS [None]
  - MOVEMENT DISORDER [None]
